FAERS Safety Report 6724549-1 (Version None)
Quarter: 2010Q2

REPORT INFORMATION
  Report Type: 
  Country: None (occurrence: None)
  Receive Date: 20100513
  Receipt Date: 20100503
  Transmission Date: 20101027
  Serious: Yes (Other)
  Sender: FDA-Public Use
  Company Number: DE-PFIZER INC-2010049497

PATIENT
  Age: 72 Year
  Sex: Female
  Weight: 79 kg

DRUGS (7)
  1. DETRUSITOL [Suspect]
     Indication: URINARY INCONTINENCE
     Dosage: 1 TABLET DAILY
     Route: 048
     Dates: start: 20100402, end: 20100404
  2. LOSARTAN POTASSIUM AND HYDROCHLOROTHIAZIDE [Concomitant]
     Dosage: UNK
  3. PRESOMEN [Concomitant]
     Dosage: UNK
  4. L-THYROXIN ^HENNING BERLIN^ [Concomitant]
     Dosage: 50 MG, 1X/DAY
  5. DICLOFENAC ^RATIOPHARM^ [Concomitant]
     Dosage: 100 MG, 1X/DAY
     Route: 054
  6. ACTOS [Concomitant]
     Dosage: 30 MG, UNK
  7. OXAZEPAM-RATIOPHARM [Concomitant]
     Dosage: 10 MG, UNK

REACTIONS (2)
  - FACE OEDEMA [None]
  - OEDEMA PERIPHERAL [None]
